FAERS Safety Report 13967448 (Version 1)
Quarter: 2017Q3

REPORT INFORMATION
  Report Type: Spontaneous
  Country: US (occurrence: US)
  Receive Date: 20170914
  Receipt Date: 20170914
  Transmission Date: 20171128
  Serious: No
  Sender: FDA-Public Use
  Company Number: US-PFIZER INC-2017395974

PATIENT
  Sex: Female

DRUGS (3)
  1. METHOTREXATE SODIUM. [Suspect]
     Active Substance: METHOTREXATE SODIUM
     Indication: RHEUMATOID ARTHRITIS
     Dosage: UNK
  2. RITUXIMAB. [Suspect]
     Active Substance: RITUXIMAB
     Dosage: UNK
  3. ORENCIA [Suspect]
     Active Substance: ABATACEPT
     Dosage: UNK

REACTIONS (1)
  - Drug effect incomplete [Unknown]
